FAERS Safety Report 16912118 (Version 2)
Quarter: 2019Q4

REPORT INFORMATION
  Report Type: Report from Study
  Country: FR (occurrence: FR)
  Receive Date: 20191014
  Receipt Date: 20191018
  Transmission Date: 20200122
  Serious: Yes (Life-Threatening)
  Sender: FDA-Public Use
  Company Number: FR-AMGEN-FRANI2018076444

PATIENT
  Age: 69 Year
  Sex: Male
  Weight: 77 kg

DRUGS (18)
  1. VALACICLOVIR [Concomitant]
     Active Substance: VALACYCLOVIR HYDROCHLORIDE
     Dosage: 500 MILLIGRAM
     Dates: start: 20170630, end: 20171219
  2. LANSOPRAZOLE. [Concomitant]
     Active Substance: LANSOPRAZOLE
     Dosage: 30 MILLIGRAM
     Dates: start: 20170707, end: 20171219
  3. BLINATUMOMAB [Suspect]
     Active Substance: BLINATUMOMAB
     Indication: B-CELL LYMPHOMA
     Dosage: 9 MICROGRAM, QD
     Route: 042
     Dates: start: 20171108, end: 20171219
  4. HYDROCORTISONE. [Concomitant]
     Active Substance: HYDROCORTISONE
     Dosage: 60 MILLIGRAM
     Dates: start: 20170630
  5. SULFAMETHOXAZOLE;TRIMETHOPRIM [Concomitant]
     Active Substance: SULFAMETHOXAZOLE\TRIMETHOPRIM
     Dosage: 1 UNK
     Dates: start: 20171009, end: 20171213
  6. HYDROXYZINE HYDROCHLORIDE. [Concomitant]
     Active Substance: HYDROXYZINE HYDROCHLORIDE
     Dosage: 25 MILLIGRAM
     Dates: start: 20171102, end: 20171111
  7. ZOPICLONE [Concomitant]
     Active Substance: ZOPICLONE
     Dosage: 7.5 MILLIGRAM
     Dates: start: 20171104, end: 20171108
  8. CALCIUM FOLINATE [Concomitant]
     Active Substance: LEUCOVORIN CALCIUM
     Dosage: 25 MICROGRAM
     Dates: start: 20171009
  9. FUNGIZONE [Concomitant]
     Active Substance: AMPHOTERICIN B
     Dosage: 1 UNK
     Dates: start: 20171102, end: 20171119
  10. DEXAMETHASONE. [Concomitant]
     Active Substance: DEXAMETHASONE
     Indication: ENCEPHALOPATHY
     Dosage: 10-20 MILLIGRAM
     Dates: start: 20171103, end: 20171220
  11. NICARDIPINE [Concomitant]
     Active Substance: NICARDIPINE
     Dosage: 50 MILLIGRAM
     Dates: start: 20171106
  12. VORICONAZOLE. [Concomitant]
     Active Substance: VORICONAZOLE
     Dosage: 300 MILLIGRAM
     Dates: start: 20170706, end: 20171213
  13. INSULIN LISPRO [Concomitant]
     Active Substance: INSULIN LISPRO
     Dosage: 1 INTERNATIONAL UNIT
     Dates: start: 20171107, end: 20171118
  14. FILGRASTIM [Concomitant]
     Active Substance: FILGRASTIM
     Dosage: 300 MICROGRAM
     Dates: start: 20171011, end: 20171115
  15. INSULIN GLARGINE [Concomitant]
     Active Substance: INSULIN GLARGINE
     Dosage: 20 INTERNATIONAL UNIT
     Dates: start: 20171106, end: 20171110
  16. RACECADOTRIL [Concomitant]
     Active Substance: RACECADOTRIL
     Dosage: 100 MILLIGRAM
     Dates: start: 20171009, end: 20171106
  17. DIOSMECTITE [Concomitant]
     Active Substance: MONTMORILLONITE
     Dosage: 1 UNK
     Dates: start: 20171009, end: 20171102
  18. FUROSEMIDE. [Concomitant]
     Active Substance: FUROSEMIDE
     Dosage: 20 MILLIGRAM
     Dates: start: 20171108, end: 20171112

REACTIONS (1)
  - Encephalopathy [Recovered/Resolved]

NARRATIVE: CASE EVENT DATE: 20171218
